FAERS Safety Report 20809286 (Version 1)
Quarter: 2022Q2

REPORT INFORMATION
  Report Type: Spontaneous
  Country: US (occurrence: None)
  Receive Date: 20220509
  Receipt Date: 20220509
  Transmission Date: 20220720
  Serious: Yes (Other)
  Sender: FDA-Public Use
  Company Number: None

PATIENT
  Age: 71 Year
  Sex: Female
  Weight: 65.77 kg

DRUGS (11)
  1. GADOLINIUM [Suspect]
     Active Substance: GADOLINIUM
     Indication: X-ray with contrast
     Dates: start: 20220408, end: 20220408
  2. SYNTHROID [Concomitant]
     Active Substance: LEVOTHYROXINE SODIUM
  3. VASCEPA [Concomitant]
     Active Substance: ICOSAPENT ETHYL
  4. VITAMIN C [Concomitant]
     Active Substance: ASCORBIC ACID
  5. VITAMIN D3 [Concomitant]
     Active Substance: CHOLECALCIFEROL
  6. ZINC [Concomitant]
     Active Substance: ZINC
  7. flax oil [Concomitant]
  8. DIETARY SUPPLEMENT [Concomitant]
     Active Substance: DIETARY SUPPLEMENT
  9. PRIMROSE [Concomitant]
  10. CALCIUM [Concomitant]
     Active Substance: CALCIUM
  11. VITAMINS [Concomitant]
     Active Substance: VITAMINS

REACTIONS (6)
  - Drug hypersensitivity [None]
  - Headache [None]
  - Nausea [None]
  - Diarrhoea [None]
  - Weight decreased [None]
  - Hypophagia [None]

NARRATIVE: CASE EVENT DATE: 20220408
